FAERS Safety Report 5145334-0 (Version None)
Quarter: 2006Q4

REPORT INFORMATION
  Report Type: 
  Country: None (occurrence: None)
  Receive Date: 20061107
  Receipt Date: 20061030
  Transmission Date: 20070319
  Serious: Yes (Other)
  Sender: FDA-Public Use
  Company Number: US-ELI_LILLY_AND_COMPANY-US200610005205

PATIENT
  Age: 58 Year
  Sex: Male

DRUGS (4)
  1. HUMALOG [Suspect]
     Dosage: 3-4 TIMES A DAY PER CARBOHYDRATE INTAKE
     Dates: start: 20010101
  2. HUMALOG [Suspect]
     Dosage: 10 U, OTHER
     Dates: start: 20061030
  3. LANTUS [Concomitant]
     Dosage: 50 U, UNK
  4. LANTUS [Concomitant]
     Dosage: 35 U, EACH EVENING

REACTIONS (10)
  - BLOOD GLUCOSE FLUCTUATION [None]
  - BLOOD GLUCOSE INCREASED [None]
  - GRAND MAL CONVULSION [None]
  - LOSS OF CONSCIOUSNESS [None]
  - PHARYNGEAL ERYTHEMA [None]
  - PHARYNGITIS STREPTOCOCCAL [None]
  - PHARYNGOLARYNGEAL PAIN [None]
  - SHOCK HYPOGLYCAEMIC [None]
  - THROAT TIGHTNESS [None]
  - TONGUE BITING [None]
